FAERS Safety Report 16078299 (Version 2)
Quarter: 2020Q1

REPORT INFORMATION
  Report Type: Spontaneous
  Country: TR (occurrence: TR)
  Receive Date: 20190315
  Receipt Date: 20200226
  Transmission Date: 20200409
  Serious: Yes (Other)
  Sender: FDA-Public Use
  Company Number: PHHY2019TR053361

PATIENT
  Sex: Female

DRUGS (2)
  1. METHOTREXATE. [Suspect]
     Active Substance: METHOTREXATE
     Indication: ECTOPIC PREGNANCY
     Dosage: 1 MG/KG, QOD
     Route: 030
  2. FOLINIC ACID [Suspect]
     Active Substance: LEUCOVORIN
     Indication: ECTOPIC PREGNANCY
     Dosage: 0.1 MG/KG, QOD
     Route: 030

REACTIONS (4)
  - Product use in unapproved indication [Unknown]
  - Tubal rupture [Unknown]
  - Treatment failure [Unknown]
  - Maternal exposure during pregnancy [Unknown]
